FAERS Safety Report 5170821-9 (Version None)
Quarter: 2006Q4

REPORT INFORMATION
  Report Type: 
  Country: None (occurrence: None)
  Receive Date: 20061205
  Receipt Date: 20061205
  Transmission Date: 20070319
  Serious: Yes (Hospitalization)
  Sender: FDA-Public Use
  Company Number: None

PATIENT
  Age: 84 Year
  Sex: Male
  Weight: 92.9874 kg

DRUGS (1)
  1. WARFARIN SODIUM [Suspect]
     Indication: CARDIOVERSION
     Dosage: 1 DAILY
     Dates: start: 20061001, end: 20061201

REACTIONS (4)
  - CONTUSION [None]
  - HAEMATOCHEZIA [None]
  - OEDEMA PERIPHERAL [None]
  - RESPIRATORY DISORDER [None]
